FAERS Safety Report 5262186-9 (Version None)
Quarter: 2007Q1

REPORT INFORMATION
  Report Type: 
  Country: None (occurrence: None)
  Receive Date: 20070312
  Receipt Date: 20070226
  Transmission Date: 20070707
  Serious: Yes (Other)
  Sender: FDA-Public Use
  Company Number: PHMT2007CA00750

PATIENT
  Age: 74 Year
  Sex: Male

DRUGS (1)
  1. PAMIDRONATE DISODIUM [Suspect]
     Dosage: UNK, QMO
     Route: 042
     Dates: start: 20040501, end: 20060301

REACTIONS (2)
  - OSTEONECROSIS [None]
  - PAIN IN JAW [None]
